FAERS Safety Report 6375845-1 (Version None)
Quarter: 2009Q3

REPORT INFORMATION
  Report Type: 
  Country: None (occurrence: None)
  Receive Date: 20090918
  Receipt Date: 20090904
  Transmission Date: 20100115
  Serious: Yes (Hospitalization)
  Sender: FDA-Public Use
  Company Number: 2009-03635

PATIENT
  Age: 71 Year
  Sex: Female
  Weight: 60 kg

DRUGS (1)
  1. VELCADE [Suspect]
     Indication: MULTIPLE MYELOMA
     Dosage: 2.1 MG, SUBCUTANEOUS
     Route: 058
     Dates: start: 20090623

REACTIONS (3)
  - IMPAIRED HEALING [None]
  - LICHEN SCLEROSUS [None]
  - POST PROCEDURAL HAEMORRHAGE [None]
